FAERS Safety Report 15785584 (Version 1)
Quarter: 2019Q1

REPORT INFORMATION
  Report Type: Spontaneous
  Country: US (occurrence: US)
  Receive Date: 20190102
  Receipt Date: 20190102
  Transmission Date: 20190417
  Serious: Yes (Hospitalization)
  Sender: FDA-Public Use
  Company Number: None

PATIENT
  Sex: Male

DRUGS (7)
  1. PEGASYS [Concomitant]
     Active Substance: PEGINTERFERON ALFA-2A
  2. TELMISA/HCTZ [Concomitant]
  3. KETAMINE [Concomitant]
     Active Substance: KETAMINE
  4. HCG [Suspect]
     Active Substance: GONADOTROPHIN, CHORIONIC
     Indication: PRODUCT USED FOR UNKNOWN INDICATION
     Dosage: ?          OTHER FREQUENCY:TWICE WEEKLY;?
     Route: 030
     Dates: start: 20180914
  5. TESTOSTERONE CYP [Concomitant]
     Active Substance: TESTOSTERONE CYPIONATE
  6. ANASTROZOLE. [Concomitant]
     Active Substance: ANASTROZOLE
  7. MENOPUR [Suspect]
     Active Substance: FOLLITROPIN\LUTEINIZING HORMONE
     Indication: PRODUCT USED FOR UNKNOWN INDICATION
     Route: 058
     Dates: start: 20181008

REACTIONS (3)
  - Therapy cessation [None]
  - Product packaging issue [None]
  - Hospitalisation [None]
